FAERS Safety Report 8880779 (Version 5)
Quarter: 2013Q1

REPORT INFORMATION
  Report Type: Report from Study
  Country: TW (occurrence: TW)
  Receive Date: 20121101
  Receipt Date: 20130122
  Transmission Date: 20140127
  Serious: Yes (Death, Hospitalization, Disabling)
  Sender: FDA-Public Use
  Company Number: TW-CELGENEUS-153-CCAZA-12102860

PATIENT
  Age: 63 Year
  Sex: Male
  Weight: 41.8 kg

DRUGS (7)
  1. AZACITIDINE INJECTABLE [Suspect]
     Indication: MYELODYSPLASTIC SYNDROME
     Dosage: 75 MILLIGRAM/SQ. METER
     Route: 058
     Dates: start: 20121002, end: 20121008
  2. SODIUM BICARBONATE [Concomitant]
     Indication: ABDOMINAL PAIN
     Route: 048
     Dates: start: 20120918, end: 20120924
  3. SODIUM BICARBONATE [Concomitant]
     Dosage: 6 TABLET
     Route: 048
     Dates: start: 20121002
  4. SODIUM BICARBONATE [Concomitant]
     Dosage: 600 MILLIGRAM
     Route: 048
     Dates: start: 20121113, end: 20121114
  5. AUGMENTIN [Concomitant]
     Indication: PYREXIA
     Dosage: 2 GRAM
     Route: 048
     Dates: start: 20120925, end: 20121001
  6. APREPITANT [Concomitant]
     Indication: PROPHYLAXIS
     Dosage: 125 MILLIGRAM
     Route: 048
     Dates: start: 20121002
  7. MEGESTROL [Concomitant]
     Indication: DECREASED APPETITE
     Dosage: 320 MILLIGRAM
     Route: 048
     Dates: start: 20121002

REACTIONS (4)
  - Colitis [Not Recovered/Not Resolved]
  - Respiratory failure [Fatal]
  - Haemorrhage intracranial [Not Recovered/Not Resolved]
  - Septic shock [Not Recovered/Not Resolved]
